FAERS Safety Report 22618435 (Version 4)
Quarter: 2025Q4

REPORT INFORMATION
  Report Type: Spontaneous
  Country: US (occurrence: US)
  Receive Date: 20230620
  Receipt Date: 20251016
  Transmission Date: 20260118
  Serious: No
  Sender: SANOFI AVENTIS
  Company Number: US-SA-SAC20230614001226

PATIENT
  Age: 63 Year
  Sex: Female

DRUGS (1)
  1. DUPIXENT [Suspect]
     Active Substance: DUPILUMAB
     Dosage: 300 MG, QOW
     Route: 058

REACTIONS (15)
  - Pain [Unknown]
  - Fatigue [Unknown]
  - Joint stiffness [Unknown]
  - Increased appetite [Unknown]
  - Bruxism [Unknown]
  - Weight increased [Unknown]
  - Visual impairment [Unknown]
  - Myalgia [Unknown]
  - Headache [Unknown]
  - Dizziness postural [Unknown]
  - Toothache [Unknown]
  - Injection site reaction [Unknown]
  - Arthralgia [Unknown]
  - Rash macular [Unknown]
  - Condition aggravated [Unknown]
